FAERS Safety Report 4622721-8 (Version None)
Quarter: 2005Q1

REPORT INFORMATION
  Report Type: 
  Country: None (occurrence: None)
  Receive Date: 20050330
  Receipt Date: 20050325
  Transmission Date: 20050727
  Serious: Yes (Other)
  Sender: FDA-Public Use
  Company Number: US-JNJFOC-20040403820

PATIENT
  Sex: Female

DRUGS (5)
  1. DURAGESIC-100 [Suspect]
     Route: 062
     Dates: start: 20040406
  2. PAXIL [Concomitant]
     Indication: DEPRESSION
     Route: 049
  3. AMITRIPTYLINE [Concomitant]
     Route: 049
  4. QUININE SULFATE [Concomitant]
     Route: 049
  5. SYNTHYROID [Concomitant]
     Route: 049

REACTIONS (6)
  - DYSPNOEA [None]
  - ILL-DEFINED DISORDER [None]
  - LOSS OF CONSCIOUSNESS [None]
  - MOBILITY DECREASED [None]
  - PAIN [None]
  - PHARMACEUTICAL PRODUCT COMPLAINT [None]
